FAERS Safety Report 7150513-7 (Version None)
Quarter: 2010Q4

REPORT INFORMATION
  Report Type: 
  Country: None (occurrence: None)
  Receive Date: 20101210
  Receipt Date: 20101110
  Transmission Date: 20110411
  Serious: No
  Sender: FDA-Public Use
  Company Number: US-BAYER-2010-001614

PATIENT
  Sex: Female
  Weight: 48 kg

DRUGS (1)
  1. ALEVE (CAPLET) [Suspect]
     Indication: HEADACHE
     Dosage: 2 DF, HS
     Route: 048
     Dates: start: 20101109

REACTIONS (1)
  - INITIAL INSOMNIA [None]
